FAERS Safety Report 8943832 (Version 1)
Quarter: 2012Q4

REPORT INFORMATION
  Report Type: 
  Country: JP (occurrence: JP)
  Receive Date: 20121204
  Receipt Date: 20121204
  Transmission Date: 20130627
  Serious: Yes (Other)
  Sender: FDA-Public Use
  Company Number: JP-ASTELLAS-2011JP009536

PATIENT
  Age: 71 Year
  Sex: Female

DRUGS (1)
  1. BETANIS [Suspect]
     Indication: HYPERTONIC BLADDER
     Dosage: 50 mg, UID/QD
     Route: 048
     Dates: start: 20111108, end: 20111205

REACTIONS (1)
  - Retinal vein occlusion [Recovering/Resolving]
